FAERS Safety Report 7573214-X (Version None)
Quarter: 2011Q2

REPORT INFORMATION
  Report Type: 
  Country: None (occurrence: None)
  Receive Date: 20110627
  Receipt Date: 20110623
  Transmission Date: 20111010
  Serious: Yes (Other)
  Sender: FDA-Public Use
  Company Number: JP-PFIZER INC-2011139270

PATIENT
  Age: 60 Year

DRUGS (1)
  1. SOLU-MEDROL [Suspect]
     Route: 042

REACTIONS (1)
  - PANCYTOPENIA [None]
